FAERS Safety Report 6667734-X (Version None)
Quarter: 2010Q2

REPORT INFORMATION
  Report Type: 
  Country: None (occurrence: None)
  Receive Date: 20100405
  Receipt Date: 20100330
  Transmission Date: 20101027
  Serious: No
  Sender: FDA-Public Use
  Company Number: US-CEPHALON-2010001862

PATIENT
  Sex: Female
  Weight: 82 kg

DRUGS (4)
  1. FENTORA [Suspect]
     Indication: BACK PAIN
     Route: 002
  2. FENTORA [Suspect]
     Indication: OSTEOARTHRITIS
  3. FENTORA [Suspect]
     Indication: LUMBAR SPINAL STENOSIS
  4. DILAUDID [Concomitant]
     Dates: start: 20080101

REACTIONS (3)
  - DRUG PRESCRIBING ERROR [None]
  - SINUSITIS [None]
  - UPPER RESPIRATORY TRACT INFECTION [None]
